FAERS Safety Report 7772072-8 (Version None)
Quarter: 2011Q3

REPORT INFORMATION
  Report Type: 
  Country: None (occurrence: None)
  Receive Date: 20110922
  Receipt Date: 20110113
  Transmission Date: 20111222
  Serious: Yes (Hospitalization, Other)
  Sender: FDA-Public Use
  Company Number: US-ASTRAZENECA-2006UW00981

PATIENT
  Age: 14832 Day
  Sex: Female
  Weight: 110.2 kg

DRUGS (30)
  1. SEROQUEL [Suspect]
     Indication: POST-TRAUMATIC STRESS DISORDER
     Dosage: 25 MG - 200 MG
     Route: 048
     Dates: start: 19990930
  2. SEROQUEL [Suspect]
     Dosage: 100 MG TO 200 MG EVERYDAY
     Route: 048
     Dates: start: 19991101, end: 20010101
  3. ZYPREXA [Suspect]
     Route: 065
  4. EFFEXOR XR [Concomitant]
     Dosage: 75-300 MG
     Route: 048
  5. AVANDIA [Concomitant]
     Dosage: 4-8 MG
     Route: 065
  6. LIPITOR [Concomitant]
  7. ACTOS [Concomitant]
     Route: 065
  8. SEROQUEL [Suspect]
     Dosage: 100 MG TO 200 MG EVERYDAY
     Route: 048
     Dates: start: 19991101, end: 20010101
  9. RISPERDAL [Suspect]
     Route: 065
  10. CLOZAPINE [Concomitant]
  11. TOPAMAX [Concomitant]
     Dosage: 25-50 MG
     Route: 065
  12. WELLBUTRIN [Concomitant]
     Dosage: 150-300 MG
     Route: 048
  13. PERCOCET [Concomitant]
     Indication: PAIN
     Dosage: 5-325 MG
     Route: 048
     Dates: start: 20021004
  14. KLONOPIN [Concomitant]
     Indication: ANXIETY
     Dosage: 1-2 MG
     Route: 048
  15. SEROQUEL [Suspect]
     Indication: PANIC DISORDER
     Dosage: 25 MG - 200 MG
     Route: 048
     Dates: start: 19990930
  16. TRAZODONE HYDROCHLORIDE [Concomitant]
  17. PROZAC [Concomitant]
     Indication: POST-TRAUMATIC STRESS DISORDER
     Dosage: 20-40 MG
     Route: 065
  18. TRAMADOL HCL [Concomitant]
     Route: 048
  19. GLUCOPHAGE [Concomitant]
     Route: 048
  20. ACCUPRIL [Concomitant]
     Dosage: 10-40 MG
     Route: 048
  21. SEROQUEL [Suspect]
     Indication: ABNORMAL SLEEP-RELATED EVENT
     Dosage: 25 MG - 200 MG
     Route: 048
     Dates: start: 19990930
  22. LEXAPRO [Concomitant]
     Route: 065
  23. THORAZINE [Concomitant]
  24. XANAX [Concomitant]
     Route: 065
  25. FLEXERIL [Concomitant]
     Route: 048
     Dates: start: 19910401
  26. VALIUM [Concomitant]
     Indication: MUSCLE SPASMS
     Route: 048
  27. HYDROCHLOROTHIAZIDE [Concomitant]
     Route: 065
  28. SEROQUEL [Suspect]
     Dosage: 100 MG TO 200 MG EVERYDAY
     Route: 048
     Dates: start: 19991101, end: 20010101
  29. VICODIN [Concomitant]
     Dosage: 5-500 MG
     Route: 048
  30. KLONOPIN [Concomitant]
     Route: 048

REACTIONS (8)
  - DIABETES MELLITUS [None]
  - HYPERLIPIDAEMIA [None]
  - HYPERTRIGLYCERIDAEMIA [None]
  - DYSLIPIDAEMIA [None]
  - HYPERTENSION [None]
  - DIABETIC KETOACIDOSIS [None]
  - WEIGHT INCREASED [None]
  - DIABETIC NEUROPATHY [None]
